FAERS Safety Report 15208855 (Version 1)
Quarter: 2018Q3

REPORT INFORMATION
  Report Type: Spontaneous
  Country: US (occurrence: US)
  Receive Date: 20180629
  Receipt Date: 20180629
  Transmission Date: 20181010
  Serious: No
  Sender: FDA-Public Use
  Company Number: None

PATIENT
  Age: 26 Day
  Sex: Male
  Weight: .6 kg

DRUGS (5)
  1. DEXAMETHASONE. [Suspect]
     Active Substance: DEXAMETHASONE
     Indication: PRODUCT USED FOR UNKNOWN INDICATION
     Route: 042
     Dates: start: 20180316, end: 20180323
  2. VITAMIN A [Concomitant]
     Active Substance: VITAMIN A
     Dates: start: 20180221, end: 20180319
  3. GENTAMICIN. [Concomitant]
     Active Substance: GENTAMICIN
     Dates: start: 20180318, end: 20180320
  4. VANCOMYCIN [Concomitant]
     Active Substance: VANCOMYCIN
     Dates: start: 20180318, end: 20180320
  5. CAFFEINE. [Concomitant]
     Active Substance: CAFFEINE
     Dates: start: 20180220, end: 20180330

REACTIONS (1)
  - Hypertension [None]

NARRATIVE: CASE EVENT DATE: 20180317
